FAERS Safety Report 8484285-0 (Version None)
Quarter: 2012Q3

REPORT INFORMATION
  Report Type: 
  Country: None (occurrence: None)
  Receive Date: 20120703
  Receipt Date: 20120628
  Transmission Date: 20120928
  Serious: Yes (Other)
  Sender: FDA-Public Use
  Company Number: US-BAYER-2012-064434

PATIENT
  Sex: Female

DRUGS (3)
  1. DROSPIRENONE AND ETHINYL ESTRADIOL [Suspect]
     Dosage: UNK
     Dates: start: 20020101
  2. YASMIN [Suspect]
     Dosage: UNK
     Dates: start: 20020101
  3. YAZ [Suspect]
     Dosage: UNK
     Dates: start: 20020101

REACTIONS (5)
  - PAIN [None]
  - ANXIETY [None]
  - INJURY [None]
  - ANHEDONIA [None]
  - GALLBLADDER DISORDER [None]
